FAERS Safety Report 12881891 (Version 4)
Quarter: 2017Q3

REPORT INFORMATION
  Report Type: Report from Study
  Country: US (occurrence: US)
  Receive Date: 20161025
  Receipt Date: 20170728
  Transmission Date: 20171127
  Serious: Yes (Other)
  Sender: FDA-Public Use
  Company Number: US-AMGEN-USASL2016136561

PATIENT
  Age: 65 Year
  Sex: Female
  Weight: 52.61 kg

DRUGS (5)
  1. CYTOMEL [Concomitant]
     Active Substance: LIOTHYRONINE SODIUM
     Dosage: 5 MUG, QD
     Route: 048
     Dates: start: 20160525
  2. REPATHA [Suspect]
     Active Substance: EVOLOCUMAB
     Indication: BLOOD CHOLESTEROL INCREASED
     Dosage: 140 MG/ML, Q2WK
     Route: 058
     Dates: start: 20160922, end: 20161013
  3. REPATHA [Suspect]
     Active Substance: EVOLOCUMAB
     Indication: TYPE IIA HYPERLIPIDAEMIA
  4. AMITRIPTYLINE [Concomitant]
     Active Substance: AMITRIPTYLINE
     Dosage: 50 MG, QD (NIGHTLY)
     Route: 048
     Dates: start: 20151111
  5. LEVOTHYROXINE. [Concomitant]
     Active Substance: LEVOTHYROXINE
     Dosage: 88 MUG, QD
     Route: 048
     Dates: start: 20160525

REACTIONS (5)
  - Myalgia [Not Recovered/Not Resolved]
  - Back pain [Unknown]
  - Arthralgia [Not Recovered/Not Resolved]
  - Bone pain [Unknown]
  - Influenza like illness [Unknown]

NARRATIVE: CASE EVENT DATE: 201609
